FAERS Safety Report 17568721 (Version 1)
Quarter: 2020Q1

REPORT INFORMATION
  Report Type: Report from Study
  Country: None (occurrence: US)
  Receive Date: 20200321
  Receipt Date: 20200321
  Transmission Date: 20200409
  Serious: Yes (Hospitalization)
  Sender: FDA-Public Use
  Company Number: US-ABBVIE-20K-163-3329686-00

PATIENT
  Sex: Female

DRUGS (2)
  1. HUMIRA [Suspect]
     Active Substance: ADALIMUMAB
     Indication: COLITIS ULCERATIVE
     Dosage: CITRATE FREE
     Route: 058
  2. METHOTREXATE. [Suspect]
     Active Substance: METHOTREXATE
     Indication: PRODUCT USED FOR UNKNOWN INDICATION
     Dosage: TOOK METHOTREXATE FOR 21 DAYS STRAIGHT
     Route: 065

REACTIONS (10)
  - Mouth ulceration [Recovering/Resolving]
  - Gastric ulcer [Recovering/Resolving]
  - Product prescribing error [Recovering/Resolving]
  - Pharyngeal ulceration [Recovering/Resolving]
  - Overdose [Recovering/Resolving]
  - Antibody test positive [Recovering/Resolving]
  - Pleurisy [Recovering/Resolving]
  - Diarrhoea [Recovering/Resolving]
  - Colitis ulcerative [Not Recovered/Not Resolved]
  - Blood count abnormal [Not Recovered/Not Resolved]

NARRATIVE: CASE EVENT DATE: 2020
